FAERS Safety Report 15153302 (Version 1)
Quarter: 2018Q3

REPORT INFORMATION
  Report Type: Report from Study
  Country: IT (occurrence: IT)
  Receive Date: 20180717
  Receipt Date: 20180717
  Transmission Date: 20181010
  Serious: Yes (Other)
  Sender: FDA-Public Use
  Company Number: IT-TEVA-2018-IT-926268

PATIENT
  Age: 74 Year
  Sex: Female

DRUGS (1)
  1. CISPLATIN. [Suspect]
     Active Substance: CISPLATIN
     Indication: SQUAMOUS CELL CARCINOMA OF THE ORAL CAVITY
     Route: 065

REACTIONS (4)
  - Candida infection [Unknown]
  - Stomatitis [Recovered/Resolved]
  - Weight decreased [Unknown]
  - Dehydration [Unknown]
